FAERS Safety Report 21361872 (Version 3)
Quarter: 2023Q1

REPORT INFORMATION
  Report Type: Report from Study
  Country: US (occurrence: US)
  Receive Date: 20220922
  Receipt Date: 20230308
  Transmission Date: 20230417
  Serious: No
  Sender: FDA-Public Use
  Company Number: US-ABBVIE-4128058

PATIENT
  Age: 39 Year
  Sex: Female
  Weight: 112 kg

DRUGS (2)
  1. SKYRIZI [Suspect]
     Active Substance: RISANKIZUMAB-RZAA
     Indication: Product used for unknown indication
     Route: 058
     Dates: start: 20220531, end: 20221214
  2. PHENTERMINE [Concomitant]
     Active Substance: PHENTERMINE
     Indication: Weight decreased
     Dosage: 18.75
     Route: 048
     Dates: start: 202204, end: 202205

REACTIONS (5)
  - Alopecia [Recovering/Resolving]
  - Hair texture abnormal [Unknown]
  - Trichorrhexis [Unknown]
  - Blood iron decreased [Unknown]
  - Vitamin D decreased [Unknown]

NARRATIVE: CASE EVENT DATE: 20220501
